FAERS Safety Report 6080557-8 (Version None)
Quarter: 2009Q1

REPORT INFORMATION
  Report Type: 
  Country: None (occurrence: None)
  Receive Date: 20090217
  Receipt Date: 20090210
  Transmission Date: 20090719
  Serious: Yes (Other)
  Sender: FDA-Public Use
  Company Number: B0554269A

PATIENT
  Age: 8 Year
  Sex: Female
  Weight: 27.4 kg

DRUGS (1)
  1. RELENZA [Suspect]
     Indication: INFLUENZA
     Dosage: 5MG TWICE PER DAY
     Route: 055
     Dates: start: 20081220, end: 20081220

REACTIONS (6)
  - ABNORMAL BEHAVIOUR [None]
  - AGITATION [None]
  - ALTERED STATE OF CONSCIOUSNESS [None]
  - BODY TEMPERATURE [None]
  - SCREAMING [None]
  - URINARY INCONTINENCE [None]
